FAERS Safety Report 8104043-6 (Version None)
Quarter: 2012Q1

REPORT INFORMATION
  Report Type: 
  Country: None (occurrence: None)
  Receive Date: 20120201
  Receipt Date: 20120127
  Transmission Date: 20120608
  Serious: No
  Sender: FDA-Public Use
  Company Number: US-PFIZER INC-2012023398

PATIENT
  Sex: Female
  Weight: 70.295 kg

DRUGS (8)
  1. LIPITOR [Suspect]
     Indication: MYOCARDIAL INFARCTION
  2. ZOCOR [Suspect]
     Indication: ARTERIAL OCCLUSIVE DISEASE
     Dosage: UNK
     Dates: end: 20111201
  3. ZOCOR [Suspect]
     Indication: CARDIAC DISORDER
  4. AMLODIPINE [Concomitant]
     Indication: HYPERTENSION
     Dosage: UNK
  5. LIPITOR [Suspect]
     Indication: BLOOD CHOLESTEROL INCREASED
     Dosage: UNK
     Dates: end: 20120101
  6. LIPITOR [Suspect]
     Indication: VASCULAR GRAFT
  7. ARICEPT [Concomitant]
     Indication: MEMORY IMPAIRMENT
     Dosage: 10 MG, UNK
  8. NAMENDA [Concomitant]
     Indication: MEMORY IMPAIRMENT
     Dosage: 10 MG, UNK

REACTIONS (2)
  - MUSCULAR WEAKNESS [None]
  - MUSCLE SPASMS [None]
